FAERS Safety Report 18058234 (Version 1)
Quarter: 2020Q3

REPORT INFORMATION
  Report Type: Spontaneous
  Country: FR (occurrence: FR)
  Receive Date: 20200723
  Receipt Date: 20200723
  Transmission Date: 20201103
  Serious: Yes (Life-Threatening, Other)
  Sender: FDA-Public Use
  Company Number: FR-AUROBINDO-AUR-APL-2020-036176

PATIENT
  Age: 45 Year
  Sex: Female
  Weight: 101 kg

DRUGS (4)
  1. DOXORUBICINE TEVA [Suspect]
     Active Substance: DOXORUBICIN
     Indication: BREAST CANCER METASTATIC
     Dosage: 240 MILLIGRAM, EVERY MONTH
     Route: 041
     Dates: start: 20190705, end: 20190819
  2. ENDOXAN [Suspect]
     Active Substance: CYCLOPHOSPHAMIDE
     Indication: BREAST CANCER METASTATIC
     Dosage: 2400 MILLIGRAM, EVERY MONTH
     Route: 041
     Dates: start: 20190705, end: 20190819
  3. CAPECITABINE. [Suspect]
     Active Substance: CAPECITABINE
     Indication: BREAST CANCER METASTATIC
     Dosage: 4000 MILLIGRAM, ONCE A DAY
     Route: 048
     Dates: start: 20200212, end: 20200625
  4. PACLITAXEL KABI [Suspect]
     Active Substance: PACLITAXEL
     Indication: BREAST CANCER METASTATIC
     Dosage: 162 MILLIGRAM, EVERY WEEK
     Route: 041
     Dates: start: 20190909, end: 20191128

REACTIONS (1)
  - Cardiac failure [Not Recovered/Not Resolved]

NARRATIVE: CASE EVENT DATE: 20200623
